FAERS Safety Report 9903245 (Version 2)
Quarter: 2014Q1

REPORT INFORMATION
  Report Type: Spontaneous
  Country: US (occurrence: US)
  Receive Date: 20140217
  Receipt Date: 20140217
  Transmission Date: 20141002
  Serious: No
  Sender: FDA-Public Use
  Company Number: US-ASTRAZENECA-2013SE70548

PATIENT
  Age: 60 Year
  Sex: Female
  Weight: 52.2 kg

DRUGS (3)
  1. TENORMIN [Suspect]
     Indication: BLOOD PRESSURE ABNORMAL
     Route: 048
     Dates: start: 2012
  2. TENORMIN [Suspect]
     Indication: BLOOD PRESSURE ABNORMAL
     Dosage: 50 MG, ONE HALF OF TABLET IN MORNING AND ONE HALF OF TABLET AT NIGHT
     Route: 048
     Dates: start: 2012
  3. TENORMIN [Suspect]
     Indication: BLOOD PRESSURE ABNORMAL
     Route: 042

REACTIONS (10)
  - Pain in extremity [Unknown]
  - Multiple injuries [Unknown]
  - Muscle strain [Unknown]
  - Hypoaesthesia [Unknown]
  - Rash [Not Recovered/Not Resolved]
  - Rash [Unknown]
  - Hypoaesthesia [Unknown]
  - Feeling cold [Unknown]
  - Intentional drug misuse [Unknown]
  - Off label use [Unknown]
